FAERS Safety Report 22399783 (Version 3)
Quarter: 2023Q2

REPORT INFORMATION
  Report Type: Spontaneous
  Country: IT (occurrence: IT)
  Receive Date: 20230602
  Receipt Date: 20230622
  Transmission Date: 20230721
  Serious: Yes (Death, Other)
  Sender: FDA-Public Use
  Company Number: None

PATIENT
  Age: 58 Year
  Sex: Male
  Weight: 65 kg

DRUGS (1)
  1. TYGACIL [Suspect]
     Active Substance: TIGECYCLINE
     Indication: Bacterial abdominal infection
     Dosage: 1 VIAL DAILY IN 100 ML NORMAL SALINE IN 3 ADMINISTRATIONS 8-14-20
     Route: 042
     Dates: start: 20230514, end: 20230516

REACTIONS (9)
  - Septic shock [Fatal]
  - Hypokalaemia [Fatal]
  - Hyperbilirubinaemia [Fatal]
  - Thrombocytopenia [Fatal]
  - Metabolic acidosis [Fatal]
  - Oxygen saturation decreased [Fatal]
  - Hypoglycaemia [Recovered/Resolved with Sequelae]
  - Hypotension [Recovered/Resolved with Sequelae]
  - Off label use [Unknown]

NARRATIVE: CASE EVENT DATE: 20230514
